FAERS Safety Report 7918265-8 (Version None)
Quarter: 2011Q4

REPORT INFORMATION
  Report Type: 
  Country: None (occurrence: None)
  Receive Date: 20111116
  Receipt Date: 20111108
  Transmission Date: 20120403
  Serious: Yes (Hospitalization)
  Sender: FDA-Public Use
  Company Number: JP-GLAXOSMITHKLINE-B0735856A

PATIENT
  Sex: Female
  Weight: 48 kg

DRUGS (10)
  1. ZOVIRAX [Concomitant]
     Dosage: 500MG PER DAY
     Route: 042
     Dates: start: 20110725, end: 20110725
  2. FAMVIR [Suspect]
     Indication: HERPES ZOSTER
     Dosage: 3IUAX PER DAY
     Route: 048
     Dates: start: 20110721
  3. AMLODIPINE [Concomitant]
     Route: 048
  4. LIPITOR [Concomitant]
     Route: 048
  5. ZOVIRAX [Concomitant]
     Indication: HERPES ZOSTER
     Dosage: 500MG PER DAY
     Route: 042
     Dates: start: 20110722, end: 20110722
  6. VALTREX [Suspect]
     Indication: HERPES ZOSTER
     Dosage: 9000MG PER DAY
     Route: 048
     Dates: start: 20110723
  7. PREDNISOLONE [Concomitant]
     Indication: ANALGESIC THERAPY
     Dates: start: 20110723
  8. LOXONIN [Suspect]
     Indication: ANALGESIC THERAPY
     Route: 065
     Dates: start: 20110722
  9. MICARDIS [Concomitant]
     Route: 048
  10. KENTAN [Concomitant]
     Indication: ANALGESIC THERAPY
     Dosage: 3IUAX PER DAY
     Route: 048
     Dates: start: 20110723

REACTIONS (5)
  - RENAL FAILURE [None]
  - ALTERED STATE OF CONSCIOUSNESS [None]
  - DELIRIUM [None]
  - DEPRESSED LEVEL OF CONSCIOUSNESS [None]
  - DEMENTIA [None]
